FAERS Safety Report 6032648-5 (Version None)
Quarter: 2009Q1

REPORT INFORMATION
  Report Type: 
  Country: None (occurrence: None)
  Receive Date: 20090109
  Receipt Date: 20090106
  Transmission Date: 20090719
  Serious: Yes (Hospitalization)
  Sender: FDA-Public Use
  Company Number: US-AMGEN-US326898

PATIENT
  Sex: Female

DRUGS (15)
  1. NPLATE [Suspect]
     Indication: IDIOPATHIC THROMBOCYTOPENIC PURPURA
     Route: 065
     Dates: start: 20081123, end: 20090102
  2. MACROBID [Concomitant]
     Route: 065
  3. METOPROLOL TARTRATE [Concomitant]
     Route: 065
  4. CALCIUM [Concomitant]
     Route: 065
  5. GLUCOSAMINE [Concomitant]
     Route: 065
  6. ESTRADIOL [Concomitant]
     Route: 065
  7. MULTI-VITAMINS [Concomitant]
     Route: 065
  8. LISINOPRIL [Concomitant]
     Route: 065
  9. FLAX SEED OIL [Concomitant]
     Route: 065
  10. VITAMIN B COMPLEX CAP [Concomitant]
     Route: 065
  11. PSYLLIUM [Concomitant]
     Route: 065
  12. UNSPECIFIED NUTRITIONAL SUPPLEMENT [Concomitant]
     Route: 065
  13. UNSPECIFIED NUTRITIONAL SUPPLEMENT [Concomitant]
     Route: 065
  14. TYLENOL (CAPLET) [Concomitant]
     Route: 065
  15. VICODIN [Concomitant]
     Route: 065

REACTIONS (1)
  - EMBOLIC STROKE [None]
